FAERS Safety Report 6778504-6 (Version None)
Quarter: 2010Q2

REPORT INFORMATION
  Report Type: 
  Country: None (occurrence: None)
  Receive Date: 20100618
  Receipt Date: 20100610
  Transmission Date: 20101027
  Serious: Yes (Other)
  Sender: FDA-Public Use
  Company Number: CA-SP-2010-03367

PATIENT
  Age: 38 Year
  Sex: Female

DRUGS (1)
  1. TUBERSOL [Suspect]
     Indication: TUBERCULIN TEST
     Route: 023

REACTIONS (5)
  - DIZZINESS [None]
  - HYPERSENSITIVITY [None]
  - INJECTION SITE URTICARIA [None]
  - LIVEDO RETICULARIS [None]
  - PALLOR [None]
